FAERS Safety Report 8478318-5 (Version None)
Quarter: 2012Q2

REPORT INFORMATION
  Report Type: 
  Country: None (occurrence: None)
  Receive Date: 20120615
  Receipt Date: 20120604
  Transmission Date: 20120825
  Serious: Yes (Other)
  Sender: FDA-Public Use
  Company Number: DSA_57817_2012

PATIENT

DRUGS (2)
  1. FLUOROURACIL [Suspect]
     Indication: GASTRIC CANCER
     Dosage: SEE IMAGE
     Route: 042
  2. THERAPEUTIC RADIOPHARMACEUTICALS (THERAPEUTIC RADIOPHARMACEUTICALS) [Suspect]
     Indication: GASTRIC CANCER
     Dosage: DF

REACTIONS (1)
  - PULMONARY EMBOLISM [None]
